FAERS Safety Report 12370262 (Version 2)
Quarter: 2016Q3

REPORT INFORMATION
  Report Type: Spontaneous
  Country: US (occurrence: US)
  Receive Date: 20160516
  Receipt Date: 20160705
  Transmission Date: 20161109
  Serious: No
  Sender: FDA-Public Use
  Company Number: US-ASTRAZENECA-2016SE41173

PATIENT
  Age: 20208 Day
  Sex: Female
  Weight: 117.9 kg

DRUGS (6)
  1. PREDNISONE. [Concomitant]
     Active Substance: PREDNISONE
     Indication: BRONCHITIS
     Dosage: 40MG DAILY FOR 5 DAYS
     Route: 048
  2. ALBUTEROL. [Concomitant]
     Active Substance: ALBUTEROL
     Indication: BRONCHITIS
     Dosage: 2 1/2 WEEKS
     Route: 055
  3. OTHER [Concomitant]
     Active Substance: UNSPECIFIED INGREDIENT
  4. SYMBICORT [Suspect]
     Active Substance: BUDESONIDE\FORMOTEROL FUMARATE DIHYDRATE
     Indication: ASTHMA
     Dosage: 160 MCG/4.5 MCG 2 PUFFS TWICE DAILY
     Route: 055
  5. PREDNISONE. [Concomitant]
     Active Substance: PREDNISONE
     Indication: BRONCHITIS
     Dosage: 10MG EACH DAY FOR 4 DAYS
     Route: 048
  6. SYMBICORT [Suspect]
     Active Substance: BUDESONIDE\FORMOTEROL FUMARATE DIHYDRATE
     Indication: MULTIPLE ALLERGIES
     Dosage: 160 MCG/4.5 MCG 2 PUFFS TWICE DAILY
     Route: 055

REACTIONS (3)
  - Product quality issue [Unknown]
  - Drug dose omission [Unknown]
  - Bronchitis [Unknown]

NARRATIVE: CASE EVENT DATE: 20160305
